FAERS Safety Report 8076538-5 (Version None)
Quarter: 2012Q1

REPORT INFORMATION
  Report Type: 
  Country: None (occurrence: None)
  Receive Date: 20120127
  Receipt Date: 20120118
  Transmission Date: 20120608
  Serious: Yes (Hospitalization)
  Sender: FDA-Public Use
  Company Number: US-JNJFOC-20120107746

PATIENT
  Sex: Female

DRUGS (9)
  1. DURAGESIC-100 [Suspect]
     Indication: PAIN
     Route: 062
  2. DURAGESIC-100 [Suspect]
     Route: 062
  3. DURAGESIC-100 [Suspect]
     Route: 062
  4. FENTANYL-100 [Suspect]
     Indication: PAIN
     Route: 062
  5. PAIN MEDICATION NOS [Suspect]
     Indication: PAIN
     Route: 065
  6. FENTANYL-100 [Suspect]
     Indication: PAIN
     Route: 062
  7. ACIPHEX [Suspect]
     Indication: GASTRIC DISORDER
     Route: 048
  8. DURAGESIC-100 [Suspect]
     Route: 062
  9. WELLBUTRIN [Concomitant]
     Indication: DEPRESSION
     Route: 065

REACTIONS (19)
  - FIBROMYALGIA [None]
  - LOWER LIMB FRACTURE [None]
  - PRODUCT PHYSICAL ISSUE [None]
  - BODY HEIGHT DECREASED [None]
  - THROMBOSIS [None]
  - PRODUCT QUALITY ISSUE [None]
  - ANKLE FRACTURE [None]
  - GAIT DISTURBANCE [None]
  - FRUSTRATION [None]
  - DECREASED ACTIVITY [None]
  - WRONG TECHNIQUE IN DRUG USAGE PROCESS [None]
  - PRODUCT ADHESION ISSUE [None]
  - ARTHRITIS [None]
  - NEUROPATHY PERIPHERAL [None]
  - MENISCUS LESION [None]
  - FOOT OPERATION [None]
  - HYPERTENSION [None]
  - PAIN [None]
  - DRUG INEFFECTIVE [None]
